FAERS Safety Report 6408943-4 (Version None)
Quarter: 2009Q4

REPORT INFORMATION
  Report Type: 
  Country: None (occurrence: None)
  Receive Date: 20091021
  Receipt Date: 20090728
  Transmission Date: 20100525
  Serious: No
  Sender: FDA-Public Use
  Company Number: US-ASTRAZENECA-2009UW21563

PATIENT

DRUGS (1)
  1. MERREM [Suspect]
     Route: 041

REACTIONS (1)
  - INJECTION SITE NECROSIS [None]
